FAERS Safety Report 12091566 (Version 3)
Quarter: 2016Q2

REPORT INFORMATION
  Report Type: Spontaneous
  Country: US (occurrence: US)
  Receive Date: 20160218
  Receipt Date: 20160413
  Transmission Date: 20160815
  Serious: Yes (Other)
  Sender: FDA-Public Use
  Company Number: US-AUROBINDO-AUR-APU-2016-01509

PATIENT
  Age: 60 Year
  Sex: Female
  Weight: 84.37 kg

DRUGS (8)
  1. GABAPENTIN CAPSULES [Suspect]
     Active Substance: GABAPENTIN
     Indication: STENOSIS
  2. CLONAZEPAM. [Concomitant]
     Active Substance: CLONAZEPAM
     Indication: RASH
  3. HYDROXYZINE [Concomitant]
     Active Substance: HYDROXYZINE\HYDROXYZINE HYDROCHLORIDE
     Indication: ANXIETY
     Dosage: 50 MG, UNK
     Route: 048
  4. BACLOFEN. [Concomitant]
     Active Substance: BACLOFEN
     Indication: HYPOTONIA
     Dosage: 20 MG, 3 TIMES A DAY
     Route: 048
  5. LIDOCAINE. [Suspect]
     Active Substance: LIDOCAINE
     Indication: ANAESTHESIA
     Route: 065
  6. GABAPENTIN CAPSULES [Suspect]
     Active Substance: GABAPENTIN
     Indication: NEUROPATHY PERIPHERAL
     Dosage: 800 MG, TWO TIMES A DAY
     Route: 048
  7. CLONAZEPAM. [Concomitant]
     Active Substance: CLONAZEPAM
     Indication: ANXIETY
     Dosage: 1 MG, TWO TIMES A DAY
     Route: 065
  8. HYDROCODONE [Concomitant]
     Active Substance: HYDROCODONE
     Indication: STENOSIS
     Dosage: ONE-TWO 10/325 MG, NOT TO EXCEED 6
     Route: 048

REACTIONS (14)
  - Haematoma [Recovered/Resolved]
  - Confusional state [Recovered/Resolved]
  - Unresponsive to stimuli [Recovered/Resolved]
  - Fall [Recovered/Resolved]
  - Ligament sprain [Recovering/Resolving]
  - Arthralgia [Recovering/Resolving]
  - Peripheral swelling [Unknown]
  - Feeling abnormal [Unknown]
  - Mental status changes [Recovered/Resolved]
  - Rash [Unknown]
  - Urticaria [Unknown]
  - Tooth loss [Recovered/Resolved]
  - Back pain [Recovering/Resolving]
  - Intentional product use issue [Unknown]

NARRATIVE: CASE EVENT DATE: 20151112
